FAERS Safety Report 13936350 (Version 2)
Quarter: 2017Q3

REPORT INFORMATION
  Report Type: Spontaneous
  Country: AU (occurrence: AU)
  Receive Date: 20170905
  Receipt Date: 20170912
  Transmission Date: 20171127
  Serious: Yes (Life-Threatening, Other)
  Sender: FDA-Public Use
  Company Number: AU-GLAXOSMITHKLINE-AU2017GSK136725

PATIENT
  Age: 34 Year
  Sex: Female

DRUGS (2)
  1. QUITEX [Suspect]
     Active Substance: NICOTINE
     Indication: SMOKING CESSATION THERAPY
     Dosage: 21 MG, UNK
  2. NICABATE [Suspect]
     Active Substance: NICOTINE
     Indication: SMOKING CESSATION THERAPY
     Dosage: UNK
     Dates: start: 20170830

REACTIONS (6)
  - Palpitations [Recovered/Resolved]
  - Rash [Recovered/Resolved with Sequelae]
  - Chest discomfort [Recovered/Resolved]
  - Respiration abnormal [Recovered/Resolved]
  - Scar [Unknown]
  - Anaphylactic reaction [Recovered/Resolved]

NARRATIVE: CASE EVENT DATE: 20170830
